FAERS Safety Report 7780245-3 (Version None)
Quarter: 2011Q3

REPORT INFORMATION
  Report Type: 
  Country: None (occurrence: None)
  Receive Date: 20110927
  Receipt Date: 20110622
  Transmission Date: 20111222
  Serious: No
  Sender: FDA-Public Use
  Company Number: US-ASTRAZENECA-2011SE37809

PATIENT
  Age: 47 Year
  Sex: Female

DRUGS (6)
  1. LITHIUM [Concomitant]
  2. ADERALL XR [Concomitant]
  3. KLONOPIN [Concomitant]
  4. ZOLOFT [Concomitant]
  5. SEROQUEL [Suspect]
     Route: 048
  6. XANAX [Concomitant]

REACTIONS (7)
  - NERVOUSNESS [None]
  - DRUG DOSE OMISSION [None]
  - INSOMNIA [None]
  - HYPERHIDROSIS [None]
  - DIARRHOEA [None]
  - NAUSEA [None]
  - DISORIENTATION [None]
